FAERS Safety Report 25896317 (Version 3)
Quarter: 2025Q4

REPORT INFORMATION
  Report Type: Spontaneous
  Country: JP (occurrence: JP)
  Receive Date: 20251008
  Receipt Date: 20251229
  Transmission Date: 20260117
  Serious: Yes (Life-Threatening, Hospitalization)
  Sender: ALEXION PHARMACEUTICALS
  Company Number: JP-ASTRAZENECA-202510JPN004031JP

PATIENT
  Age: 61 Year
  Sex: Female
  Weight: 60.2 kg

DRUGS (11)
  1. FASLODEX [Suspect]
     Active Substance: FULVESTRANT
     Indication: Breast cancer
     Dosage: 500 MILLIGRAM
     Route: 065
  2. FASLODEX [Suspect]
     Active Substance: FULVESTRANT
  3. TRUQAP [Suspect]
     Active Substance: CAPIVASERTIB
     Indication: Breast cancer
     Dosage: 400 MILLIGRAM, BID
     Route: 061
  4. CARVEDILOL [Concomitant]
     Active Substance: CARVEDILOL
     Dosage: UNK
     Route: 065
  5. AZILSARTAN KAMEDOXOMIL [Concomitant]
     Active Substance: AZILSARTAN KAMEDOXOMIL
     Dosage: UNK
     Route: 065
  6. AMLODIPINE [Concomitant]
     Active Substance: AMLODIPINE BESYLATE
     Dosage: UNK
     Route: 065
  7. VONOPRAZAN FUMARATE [Concomitant]
     Active Substance: VONOPRAZAN FUMARATE
     Dosage: UNK
     Route: 065
  8. MIYA-BM [Concomitant]
     Active Substance: CLOSTRIDIUM BUTYRICUM SPORES STRAIN M-55
     Dosage: UNK
     Route: 065
  9. CARBOCYSTEINE [Concomitant]
     Active Substance: CARBOCYSTEINE
     Dosage: UNK
     Route: 065
  10. LOPERAMIDE [Concomitant]
     Active Substance: LOPERAMIDE
     Dosage: UNK
     Route: 065
  11. LEVOTHYROXINE [Concomitant]
     Active Substance: LEVOTHYROXINE
     Dosage: UNK
     Route: 065

REACTIONS (1)
  - Drug eruption [Recovered/Resolved]

NARRATIVE: CASE EVENT DATE: 20250612
